FAERS Safety Report 10435174 (Version 1)
Quarter: 2014Q3

REPORT INFORMATION
  Report Type: Spontaneous
  Country: JP (occurrence: JP)
  Receive Date: 20140907
  Receipt Date: 20140907
  Transmission Date: 20150326
  Serious: Yes (Hospitalization)
  Sender: FDA-Public Use
  Company Number: PHHY2011JP122709

PATIENT
  Age: 50 Year
  Sex: Female

DRUGS (5)
  1. EXJADE [Suspect]
     Active Substance: DEFERASIROX
     Dosage: 500 MG, UNK
  2. NEORAL [Concomitant]
     Active Substance: CYCLOSPORINE
     Dosage: UNK UKN, UNK
  3. EXJADE [Suspect]
     Active Substance: DEFERASIROX
     Dosage: 750 MG, UNK
     Dates: start: 201202
  4. EXJADE [Suspect]
     Active Substance: DEFERASIROX
     Indication: APLASTIC ANAEMIA
     Dosage: 125 MG, DAILY
     Dates: start: 201103
  5. EXJADE [Suspect]
     Active Substance: DEFERASIROX
     Dosage: 625 MG, UNK

REACTIONS (2)
  - Blood creatinine increased [Recovering/Resolving]
  - Transient ischaemic attack [Unknown]
